FAERS Safety Report 6874912-3 (Version None)
Quarter: 2010Q3

REPORT INFORMATION
  Report Type: 
  Country: None (occurrence: None)
  Receive Date: 20100723
  Receipt Date: 20100712
  Transmission Date: 20110219
  Serious: Yes (Hospitalization)
  Sender: FDA-Public Use
  Company Number: 7000730

PATIENT
  Age: 13 Year
  Sex: Female

DRUGS (2)
  1. REBIF [Suspect]
     Indication: RELAPSING-REMITTING MULTIPLE SCLEROSIS
     Dosage: 22 MCG, 3 IN 1 WK, SUBCUTANEOUS ; 22 MCG, 2 IN 1 WK
     Route: 058
     Dates: start: 20091001, end: 20100305
  2. REBIF [Suspect]
     Indication: RELAPSING-REMITTING MULTIPLE SCLEROSIS
     Dosage: 22 MCG, 3 IN 1 WK, SUBCUTANEOUS ; 22 MCG, 2 IN 1 WK
     Route: 058
     Dates: start: 20100305, end: 20100419

REACTIONS (2)
  - LYMPHOPENIA [None]
  - THROMBOCYTOPENIA [None]
